FAERS Safety Report 5416557-8 (Version None)
Quarter: 2007Q3

REPORT INFORMATION
  Report Type: 
  Country: None (occurrence: None)
  Receive Date: 20070814
  Receipt Date: 20070814
  Transmission Date: 20080115
  Serious: No
  Sender: FDA-Public Use
  Company Number: None

PATIENT
  Sex: Female

DRUGS (1)
  1. FENTANYL TRANSDERMAL SYSTEM [Suspect]
     Indication: KNEE OPERATION
     Dosage: 75MCG 1 PATCH EVERY 3 DAYS
     Dates: start: 20070601, end: 20070701

REACTIONS (2)
  - PAIN [None]
  - PHARMACEUTICAL PRODUCT COMPLAINT [None]
